FAERS Safety Report 14615054 (Version 1)
Quarter: 2018Q1

REPORT INFORMATION
  Report Type: Not Available
  Country: US (occurrence: US)
  Receive Date: 20180308
  Receipt Date: 20180308
  Transmission Date: 20180509
  Serious: Yes (Death)
  Sender: FDA-Public Use
  Company Number: US-NEUROCRINE BIOSCIENCES INC.-2018NBI00676

PATIENT
  Age: 68 Year
  Sex: Female

DRUGS (8)
  1. PROLIA [Concomitant]
     Active Substance: DENOSUMAB
  2. TYLENOL [Concomitant]
     Active Substance: ACETAMINOPHEN
  3. DILTIAZEM HCL ER BEADS [Concomitant]
  4. EFFEXOR XR [Concomitant]
     Active Substance: VENLAFAXINE HYDROCHLORIDE
  5. INGREZZA [Suspect]
     Active Substance: VALBENAZINE
     Route: 048
     Dates: start: 20170704, end: 20180107
  6. ALENDRONATE [Concomitant]
     Active Substance: ALENDRONATE SODIUM
  7. INGREZZA [Suspect]
     Active Substance: VALBENAZINE
     Indication: PRODUCT USED FOR UNKNOWN INDICATION
     Route: 048
     Dates: start: 20170627, end: 20170703
  8. XANAX [Concomitant]
     Active Substance: ALPRAZOLAM

REACTIONS (1)
  - Death [Fatal]

NARRATIVE: CASE EVENT DATE: 20180107
